FAERS Safety Report 6718064-9 (Version None)
Quarter: 2010Q2

REPORT INFORMATION
  Report Type: 
  Country: None (occurrence: None)
  Receive Date: 20100510
  Receipt Date: 20100430
  Transmission Date: 20101027
  Serious: Yes (Death, Hospitalization)
  Sender: FDA-Public Use
  Company Number: A0813015A

PATIENT
  Age: 78 Year
  Sex: Female
  Weight: 57.7 kg

DRUGS (17)
  1. AVANDIA [Suspect]
     Route: 048
     Dates: start: 20001001
  2. NAPROXEN [Concomitant]
  3. LOVENOX [Concomitant]
  4. DURAGESIC-100 [Concomitant]
  5. FAMOTIDINE [Concomitant]
  6. ARICEPT [Concomitant]
  7. ZOCOR [Concomitant]
  8. FLUOXETINE [Concomitant]
  9. SENNA [Concomitant]
  10. TIMOLOL MALEATE [Concomitant]
  11. XALATAN [Concomitant]
  12. DARVOCET [Concomitant]
  13. MORPHINE [Concomitant]
  14. MILK OF MAGNESIA TAB [Concomitant]
  15. PROPOXYPHENE NAPSYLATE [Concomitant]
  16. NAMENDA [Concomitant]
  17. FOSAMAX [Concomitant]

REACTIONS (11)
  - ANGINA PECTORIS [None]
  - BRAIN HYPOXIA [None]
  - BRONCHOPNEUMONIA [None]
  - CARDIOVASCULAR DISORDER [None]
  - CHEST PAIN [None]
  - DEMENTIA [None]
  - EMOTIONAL DISORDER [None]
  - HIP FRACTURE [None]
  - OEDEMA [None]
  - RESPIRATORY FAILURE [None]
  - WEIGHT INCREASED [None]
